FAERS Safety Report 9519490 (Version 1)
Quarter: 2013Q1

REPORT INFORMATION
  Report Type: Spontaneous
  Country: US (occurrence: None)
  Receive Date: 20130305
  Receipt Date: 20130305
  Transmission Date: 20140127
  Serious: Yes (Disabling)
  Sender: FDA-Public Use
  Company Number: 163-21880-12010738

PATIENT
  Age: 70 Year
  Sex: Female

DRUGS (1)
  1. REVLIMID (LENALIDOMIDE) (25 MILLIGRAM, CAPSULES) [Suspect]
     Indication: PLASMA CELL MYELOMA
     Dosage: DAILY X 21/28D
     Route: 048
     Dates: start: 20080826, end: 20110927

REACTIONS (2)
  - Drug ineffective [None]
  - Plasma cell myeloma [None]
